FAERS Safety Report 20008378 (Version 3)
Quarter: 2022Q1

REPORT INFORMATION
  Report Type: Report from Study
  Country: US (occurrence: US)
  Receive Date: 20211028
  Receipt Date: 20220120
  Transmission Date: 20220424
  Serious: Yes (Hospitalization, Other)
  Sender: FDA-Public Use
  Company Number: US-BOEHRINGERINGELHEIM-2021-BI-087738

PATIENT
  Age: 79 Year
  Sex: Male

DRUGS (8)
  1. OFEV [Suspect]
     Active Substance: NINTEDANIB
     Indication: Interstitial lung disease
     Route: 048
     Dates: start: 20210208
  2. OFEV [Suspect]
     Active Substance: NINTEDANIB
     Indication: Idiopathic pulmonary fibrosis
     Route: 048
     Dates: start: 20210219, end: 20210304
  3. OFEV [Suspect]
     Active Substance: NINTEDANIB
     Route: 048
  4. COVID-19 VACCINE NOS [Suspect]
     Active Substance: COVID-19 VACCINE NOS
     Indication: Product used for unknown indication
     Dates: start: 20210226
  5. ESBRIET [Suspect]
     Active Substance: PIRFENIDONE
     Indication: Interstitial lung disease
     Dosage: (3 TABLETS) TWICE DAILY
     Route: 048
     Dates: start: 202111
  6. ESBRIET [Suspect]
     Active Substance: PIRFENIDONE
     Route: 048
  7. ESBRIET [Suspect]
     Active Substance: PIRFENIDONE
     Dosage: (2 TABLETS)
     Route: 048
  8. ESBRIET [Suspect]
     Active Substance: PIRFENIDONE
     Dates: start: 20211111

REACTIONS (10)
  - Asthenia [Not Recovered/Not Resolved]
  - Pancreatitis [Recovered/Resolved]
  - Illness [Unknown]
  - Abdominal discomfort [Recovered/Resolved]
  - Nausea [Not Recovered/Not Resolved]
  - Constipation [Unknown]
  - Vomiting [Not Recovered/Not Resolved]
  - Gastric disorder [Not Recovered/Not Resolved]
  - Diarrhoea [Not Recovered/Not Resolved]
  - Abdominal pain upper [Not Recovered/Not Resolved]

NARRATIVE: CASE EVENT DATE: 20210222
